FAERS Safety Report 24532117 (Version 3)
Quarter: 2024Q4

REPORT INFORMATION
  Report Type: Report from Study
  Country: TW (occurrence: TW)
  Receive Date: 20241022
  Receipt Date: 20241114
  Transmission Date: 20250114
  Serious: Yes (Hospitalization)
  Sender: EMD SERONO INC
  Company Number: TW-Merck Healthcare KGaA-2024054858

PATIENT
  Age: 1 Year
  Sex: Male

DRUGS (1)
  1. SAIZEN [Suspect]
     Active Substance: SOMATROPIN
     Indication: Growth hormone deficiency
     Route: 058
     Dates: start: 20240110, end: 20241013

REACTIONS (2)
  - Pneumonitis [Recovered/Resolved]
  - Nasopharyngitis [Unknown]

NARRATIVE: CASE EVENT DATE: 20241014
